FAERS Safety Report 9704701 (Version 1)
Quarter: 2013Q4

REPORT INFORMATION
  Report Type: Spontaneous
  Country: US (occurrence: US)
  Receive Date: 20131122
  Receipt Date: 20131122
  Transmission Date: 20140711
  Serious: Yes (Other)
  Sender: FDA-Public Use
  Company Number: US-JNJFOC-20131107376

PATIENT
  Age: 6 Year
  Sex: Female

DRUGS (8)
  1. DOXORUBICIN [Suspect]
     Indication: SMALL CELL CARCINOMA
     Route: 042
  2. VINBLASTINE [Suspect]
     Indication: SMALL CELL CARCINOMA
     Route: 065
  3. CISPLATIN [Suspect]
     Indication: SMALL CELL CARCINOMA
     Route: 065
  4. CYCLOPHOSPHAMIDE [Suspect]
     Indication: SMALL CELL CARCINOMA
     Route: 065
  5. BLEOMYCIN [Suspect]
     Indication: SMALL CELL CARCINOMA
     Route: 065
  6. ETOPOSIDE [Suspect]
     Indication: SMALL CELL CARCINOMA
     Route: 065
  7. CARBOPLATIN [Suspect]
     Indication: SMALL CELL CARCINOMA
     Route: 065
  8. MELPHALAN [Suspect]
     Indication: SMALL CELL CARCINOMA
     Route: 065

REACTIONS (8)
  - Bone marrow failure [Recovered/Resolved]
  - Febrile neutropenia [Recovered/Resolved]
  - Abdominal compartment syndrome [Recovered/Resolved]
  - Renal failure [Recovered/Resolved]
  - Respiratory failure [Recovered/Resolved]
  - Venoocclusive liver disease [Recovered/Resolved]
  - Ascites [Recovered/Resolved]
  - Decreased appetite [Recovered/Resolved]
